FAERS Safety Report 21462411 (Version 1)
Quarter: 2022Q4

REPORT INFORMATION
  Report Type: Spontaneous
  Country: US (occurrence: None)
  Receive Date: 20221014
  Receipt Date: 20221014
  Transmission Date: 20230113
  Serious: Yes (Hospitalization)
  Sender: FDA-Public Use
  Company Number: None

PATIENT
  Age: 85 Year
  Sex: Male
  Weight: 90 kg

DRUGS (1)
  1. NIRMATRELVIR\RITONAVIR [Suspect]
     Active Substance: NIRMATRELVIR\RITONAVIR
     Indication: COVID-19
     Dosage: 3 TQB BID PO?
     Route: 048
     Dates: start: 20220926, end: 20221001

REACTIONS (12)
  - Abdominal pain [None]
  - Dysuria [None]
  - Haematuria [None]
  - Urinary tract infection [None]
  - Sepsis [None]
  - Nephrolithiasis [None]
  - Anaemia [None]
  - Hypokalaemia [None]
  - Acute kidney injury [None]
  - Troponin increased [None]
  - Acute myocardial infarction [None]
  - Therapy interrupted [None]

NARRATIVE: CASE EVENT DATE: 20221007
